FAERS Safety Report 9682547 (Version 3)
Quarter: 2013Q4

REPORT INFORMATION
  Report Type: Spontaneous
  Country: AR (occurrence: AR)
  Receive Date: 20131112
  Receipt Date: 20131129
  Transmission Date: 20140711
  Serious: Yes (Hospitalization, Other)
  Sender: FDA-Public Use
  Company Number: AR-AMGEN-ARGSP2011044600

PATIENT
  Age: 61 Year
  Sex: Male

DRUGS (3)
  1. ENBREL [Suspect]
     Indication: RHEUMATOID ARTHRITIS
     Dosage: 25 MG, 2X/WEEK
     Route: 058
     Dates: start: 20091212, end: 201012
  2. METHOTREXATE [Concomitant]
     Dosage: UNK
  3. CORTICOSTEROIDS [Concomitant]
     Dosage: UNK

REACTIONS (6)
  - Osteoarthritis [Recovered/Resolved]
  - Joint dislocation [Recovered/Resolved]
  - Synovial cyst [Recovered/Resolved]
  - Medical device pain [Recovered/Resolved]
  - Device related infection [Recovered/Resolved]
  - Infection [Recovered/Resolved]
